FAERS Safety Report 4508223-8 (Version None)
Quarter: 2004Q4

REPORT INFORMATION
  Report Type: 
  Country: None (occurrence: None)
  Receive Date: 20041123
  Receipt Date: 20031120
  Transmission Date: 20050328
  Serious: No
  Sender: FDA-Public Use
  Company Number: US-GLAXOSMITHKLINE-A0440559A

PATIENT
  Age: 43 Year
  Sex: Male

DRUGS (5)
  1. WELLBUTRIN [Suspect]
     Indication: DEPRESSION
     Dosage: 300MG TWICE PER DAY
     Route: 048
  2. XANAX [Concomitant]
  3. CLONAZEPAM [Concomitant]
  4. TOPAMAX [Concomitant]
  5. CLARITIN [Concomitant]

REACTIONS (1)
  - INSOMNIA [None]
